FAERS Safety Report 5164183-0 (Version None)
Quarter: 2006Q4

REPORT INFORMATION
  Report Type: 
  Country: None (occurrence: None)
  Receive Date: 20060918
  Receipt Date: 20050906
  Transmission Date: 20070319
  Serious: Yes (Other)
  Sender: FDA-Public Use
  Company Number: US-JNJFOC-20050901843

PATIENT
  Age: 56 Year
  Sex: Female
  Weight: 99.7913 kg

DRUGS (3)
  1. TOPAMAX [Suspect]
     Indication: MIGRAINE PROPHYLAXIS
     Dosage: 50 MG, 1 IN 1 DAY, ORAL
     Route: 048
     Dates: start: 20020906
  2. SINGULAIR [Concomitant]
  3. ADVAIR (SERETIDE MITE) [Concomitant]

REACTIONS (3)
  - CHEST DISCOMFORT [None]
  - HEADACHE [None]
  - SUPRAVENTRICULAR EXTRASYSTOLES [None]
